FAERS Safety Report 5873149-4 (Version None)
Quarter: 2008Q3

REPORT INFORMATION
  Report Type: 
  Country: None (occurrence: None)
  Receive Date: 20080908
  Receipt Date: 20080827
  Transmission Date: 20090109
  Serious: Yes (Hospitalization, Other)
  Sender: FDA-Public Use
  Company Number: BR-JNJFOC-20080900273

PATIENT

DRUGS (5)
  1. TOPAMAX [Suspect]
     Indication: DEPRESSION
     Route: 048
  2. ALPRAZOLAM [Suspect]
     Route: 048
  3. ALPRAZOLAM [Suspect]
     Indication: ANXIETY
     Route: 048
  4. ESCITALOPRAM [Concomitant]
     Indication: DEPRESSION
     Route: 048
  5. QUETIAPINE FUMARATE [Concomitant]
     Indication: DEPRESSION
     Route: 048

REACTIONS (1)
  - INTENTIONAL OVERDOSE [None]
